FAERS Safety Report 23637092 (Version 1)
Quarter: 2024Q1

REPORT INFORMATION
  Report Type: Spontaneous
  Country: NL (occurrence: NL)
  Receive Date: 20240315
  Receipt Date: 20240315
  Transmission Date: 20240410
  Serious: Yes (Life-Threatening, Hospitalization)
  Sender: FDA-Public Use
  Company Number: None

PATIENT
  Age: 74 Year
  Sex: Male

DRUGS (2)
  1. CYCLOSPORINE [Suspect]
     Active Substance: CYCLOSPORINE
     Indication: Dermatitis contact
     Dosage: 3X DAY (2 IN THE MORNING AND 1 IN THE EVENING)/ BRAND NAME NOT SPECIFIED
     Route: 065
     Dates: start: 20221011, end: 20221026
  2. DORZOLAMIDE\TIMOLOL [Concomitant]
     Active Substance: DORZOLAMIDE\TIMOLOL
     Indication: Product used for unknown indication
     Dosage: 5/20 MG/ML /BRAND NAME NOT SPECIFIED.
     Route: 065

REACTIONS (2)
  - Syncope [Recovered/Resolved]
  - Gastric haemorrhage [Recovered/Resolved]
